FAERS Safety Report 21746274 (Version 4)
Quarter: 2023Q2

REPORT INFORMATION
  Report Type: Spontaneous
  Country: PL (occurrence: PL)
  Receive Date: 20221219
  Receipt Date: 20230607
  Transmission Date: 20230722
  Serious: Yes (Other)
  Sender: FDA-Public Use
  Company Number: PL-SUN PHARMACEUTICAL INDUSTRIES LTD-2022RR-369144

PATIENT
  Age: 41 Year
  Sex: Male

DRUGS (20)
  1. IBUPROFEN [Interacting]
     Active Substance: IBUPROFEN
     Indication: Visceral pain
     Dosage: 1800 MILLIGRAM, DAILY
     Route: 065
  2. IBUPROFEN [Interacting]
     Active Substance: IBUPROFEN
     Indication: Pancreatitis chronic
     Dosage: 1800 MG/DAY, QD
     Route: 048
  3. ATORVASTATIN [Interacting]
     Active Substance: ATORVASTATIN
     Indication: Dyslipidaemia
     Dosage: 40 MILLIGRAM, DAILY
     Route: 065
  4. ATORVASTATIN [Interacting]
     Active Substance: ATORVASTATIN
     Dosage: 40 MG/DAY, QD
     Route: 048
  5. OMEPRAZOLE [Suspect]
     Active Substance: OMEPRAZOLE
     Indication: Abdominal pain upper
     Dosage: 40 MILLIGRAM, QD
     Route: 048
  6. QUETIAPINE [Interacting]
     Active Substance: QUETIAPINE
     Indication: Anxiety
     Dosage: 100 MILLIGRAM, DAILY
     Route: 065
  7. QUETIAPINE [Interacting]
     Active Substance: QUETIAPINE
     Indication: Insomnia
     Dosage: 100 MG, QD
     Route: 048
  8. QUETIAPINE [Interacting]
     Active Substance: QUETIAPINE
     Indication: Sleep disorder
  9. TRAMADOL [Suspect]
     Active Substance: TRAMADOL
     Indication: Visceral pain
     Dosage: 200 MILLIGRAM, DAILY
     Route: 065
  10. TRAMADOL [Suspect]
     Active Substance: TRAMADOL
     Dosage: 300 MILLIGRAM, DAILY
     Route: 065
  11. OMEPRAZOLE [Interacting]
     Active Substance: OMEPRAZOLE
     Indication: Visceral pain
     Dosage: 40 MG, QD
     Route: 048
  12. METAMIZOLE [Concomitant]
     Active Substance: METAMIZOLE
     Indication: Visceral pain
     Dosage: 1000 MILLIGRAM (UP TO A MAXIMUM DOSE OF 5000 MG/D IF HIS PAIN EXACERBATED)
     Route: 065
  13. PITAVASTATIN [Concomitant]
     Active Substance: PITAVASTATIN
     Indication: Product used for unknown indication
     Dosage: UNK
     Route: 065
  14. TRAMADOL [Interacting]
     Active Substance: TRAMADOL
     Indication: Visceral pain
     Dosage: 300 MG/DAY, QD
     Route: 048
  15. TRAMADOL [Interacting]
     Active Substance: TRAMADOL
     Dosage: 200 MG/DAY, QD
     Route: 048
  16. PREGABALIN [Concomitant]
     Active Substance: PREGABALIN
     Indication: Product used for unknown indication
     Dosage: 75 MILLIGRAM, PM
     Route: 065
  17. TRAMADOL [Interacting]
     Active Substance: TRAMADOL
     Indication: Pancreatitis chronic
     Dosage: FIRST 200 MG/DAY, THEN 300 MG/DAY
     Route: 048
  18. BUPRENORPHINE [Concomitant]
     Active Substance: BUPRENORPHINE
     Indication: Visceral pain
     Dosage: 17.5 MICROGRAM, QH (NEW PATCH APPLIED EVERY 72 HOURS)
     Route: 065
  19. OMEPRAZOLE [Interacting]
     Active Substance: OMEPRAZOLE
     Indication: Pancreatitis chronic
     Dosage: 40 MG/DAY, QD
     Route: 048
  20. OMEPRAZOLE [Interacting]
     Active Substance: OMEPRAZOLE
     Indication: Visceral pain

REACTIONS (18)
  - Drug ineffective [Unknown]
  - Therapeutic product effect incomplete [Unknown]
  - Seizure [Recovered/Resolved]
  - Drug interaction [Recovered/Resolved]
  - Sleep disorder [Recovering/Resolving]
  - Anxiety [Recovered/Resolved]
  - Condition aggravated [Unknown]
  - Seizure [Recovered/Resolved]
  - Visceral pain [Recovering/Resolving]
  - Sleep disorder [Recovered/Resolved]
  - Abdominal pain upper [Recovered/Resolved]
  - Anxiety [Recovered/Resolved]
  - Inadequate analgesia [Recovered/Resolved]
  - Fear [Recovering/Resolving]
  - Poor quality sleep [Recovering/Resolving]
  - Dysbiosis [Unknown]
  - Pain [Recovered/Resolved]
  - Insomnia [Recovering/Resolving]
